FAERS Safety Report 13736780 (Version 1)
Quarter: 2017Q3

REPORT INFORMATION
  Report Type: Spontaneous
  Country: US (occurrence: US)
  Receive Date: 20170708
  Receipt Date: 20170708
  Transmission Date: 20171127
  Serious: Yes (Death, Hospitalization)
  Sender: FDA-Public Use
  Company Number: None

PATIENT
  Age: 7 Year
  Sex: Female
  Weight: 44 kg

DRUGS (5)
  1. ONCASPAR [Suspect]
     Active Substance: PEGASPARGASE
     Dates: end: 20170625
  2. DEXAMETHASONE. [Suspect]
     Active Substance: DEXAMETHASONE
     Dates: end: 20170629
  3. CYTARABINE. [Suspect]
     Active Substance: CYTARABINE
     Dates: end: 20170622
  4. METHOTREXATE. [Suspect]
     Active Substance: METHOTREXATE
     Dates: end: 20170629
  5. VINCRISTINE SULFATE. [Suspect]
     Active Substance: VINCRISTINE SULFATE
     Dates: end: 20170629

REACTIONS (13)
  - Pyrexia [None]
  - Moaning [None]
  - Vomiting [None]
  - Unresponsive to stimuli [None]
  - Decorticate posture [None]
  - CSF culture positive [None]
  - Generalised tonic-clonic seizure [None]
  - Meningitis [None]
  - Hydrocephalus [None]
  - Bacillus test positive [None]
  - Brain death [None]
  - Postictal state [None]
  - Hypernatraemia [None]

NARRATIVE: CASE EVENT DATE: 20170630
